FAERS Safety Report 26071916 (Version 1)
Quarter: 2025Q4

REPORT INFORMATION
  Report Type: Spontaneous
  Country: EU (occurrence: EU)
  Receive Date: 20251120
  Receipt Date: 20251120
  Transmission Date: 20260117
  Serious: Yes (Other)
  Sender: MYLAN
  Company Number: None

PATIENT
  Age: 45 Year
  Sex: Male
  Weight: 102 kg

DRUGS (4)
  1. ATORVASTATIN [Suspect]
     Active Substance: ATORVASTATIN
     Indication: Hypercholesterolaemia
     Dosage: 10 MILLIGRAM, ORIGINALLY, THE DOSAGE WAS 1 TABLET EVERY MORNING. FROM AROUND SEPTEMBER 2025,
     Dates: start: 20250623, end: 20251020
  2. ATORVASTATIN [Suspect]
     Active Substance: ATORVASTATIN
     Dosage: 10 MILLIGRAM, ORIGINALLY, THE DOSAGE WAS 1 TABLET EVERY MORNING. FROM AROUND SEPTEMBER 2025,
     Route: 048
     Dates: start: 20250623, end: 20251020
  3. ATORVASTATIN [Suspect]
     Active Substance: ATORVASTATIN
     Dosage: 10 MILLIGRAM, ORIGINALLY, THE DOSAGE WAS 1 TABLET EVERY MORNING. FROM AROUND SEPTEMBER 2025,
     Route: 048
     Dates: start: 20250623, end: 20251020
  4. ATORVASTATIN [Suspect]
     Active Substance: ATORVASTATIN
     Dosage: 10 MILLIGRAM, ORIGINALLY, THE DOSAGE WAS 1 TABLET EVERY MORNING. FROM AROUND SEPTEMBER 2025,
     Dates: start: 20250623, end: 20251020

REACTIONS (1)
  - Erectile dysfunction [Recovering/Resolving]

NARRATIVE: CASE EVENT DATE: 20250623
